FAERS Safety Report 6801272-6 (Version None)
Quarter: 2010Q2

REPORT INFORMATION
  Report Type: 
  Country: None (occurrence: None)
  Receive Date: 20100629
  Receipt Date: 20100427
  Transmission Date: 20101027
  Serious: No
  Sender: FDA-Public Use
  Company Number: A0856916A

PATIENT
  Sex: Male

DRUGS (2)
  1. LAMICTAL XR [Suspect]
     Dosage: 25MG IN THE MORNING
     Route: 048
  2. TEGRETOL [Concomitant]

REACTIONS (5)
  - DECREASED APPETITE [None]
  - DIZZINESS [None]
  - PERSONALITY CHANGE [None]
  - RASH [None]
  - SOMNOLENCE [None]
